FAERS Safety Report 10197333 (Version 1)
Quarter: 2014Q2

REPORT INFORMATION
  Report Type: Report from Study
  Country: US (occurrence: US)
  Receive Date: 20140527
  Receipt Date: 20140527
  Transmission Date: 20141212
  Serious: Yes (Hospitalization, Other)
  Sender: FDA-Public Use
  Company Number: US-ABBVIE-14P-163-1239525-00

PATIENT
  Age: 67 Year
  Sex: Female
  Weight: 113.5 kg

DRUGS (32)
  1. HUMIRA [Suspect]
     Indication: RHEUMATOID ARTHRITIS
  2. CLONIDINE [Concomitant]
     Indication: HYPERTENSION
  3. VITAMIN C [Concomitant]
     Indication: VITAMIN SUPPLEMENTATION
  4. POTASSIUM [Concomitant]
     Indication: MINERAL SUPPLEMENTATION
  5. MYSOLINE [Concomitant]
     Indication: TREMOR
  6. KLONOPIN [Concomitant]
     Indication: PRODUCT USED FOR UNKNOWN INDICATION
  7. METOPROLOL TARTRATE [Concomitant]
     Indication: CARDIAC DISORDER
  8. ZOLOFT [Concomitant]
     Indication: DEPRESSION
  9. COUMADIN [Concomitant]
     Indication: THROMBOSIS PROPHYLAXIS
  10. SPIRONOLACTONE [Concomitant]
     Indication: DIURETIC THERAPY
     Dosage: ON MONDAY, WEDNESDAY, FRIDAY
  11. LEVSIN [Concomitant]
     Indication: GASTRIC DISORDER
  12. LASIX [Concomitant]
     Indication: CARDIAC FAILURE CONGESTIVE
  13. FOLIC ACID [Concomitant]
     Indication: PRODUCT USED FOR UNKNOWN INDICATION
  14. CLONAZEPAM [Concomitant]
     Indication: PRODUCT USED FOR UNKNOWN INDICATION
  15. ALDACTONE [Concomitant]
     Indication: DIURETIC THERAPY
  16. SIMVASTATIN [Concomitant]
     Indication: BLOOD CHOLESTEROL INCREASED
  17. METOLAZONE [Concomitant]
     Indication: PRODUCT USED FOR UNKNOWN INDICATION
  18. TRILEPTAL [Concomitant]
     Indication: CONVULSION
  19. TRACLEER [Concomitant]
     Indication: PULMONARY HYPERTENSION
  20. REVATIO [Concomitant]
     Indication: PULMONARY HYPERTENSION
  21. NOVOLOG [Concomitant]
     Indication: DIABETES MELLITUS
  22. NEURONTIN [Concomitant]
     Indication: RESTLESS LEGS SYNDROME
  23. MAGNESIUM [Concomitant]
     Indication: MINERAL SUPPLEMENTATION
  24. LOSARTAN [Concomitant]
     Indication: HYPERTENSION
  25. LANTUS [Concomitant]
     Indication: DIABETES MELLITUS
  26. CARAFATE [Concomitant]
     Indication: ULCER
  27. VITAMIN D [Concomitant]
     Indication: VITAMIN SUPPLEMENTATION
  28. SYMBICORT [Concomitant]
     Indication: ASTHMA
  29. ASPIRIN [Concomitant]
     Indication: CARDIAC DISORDER
  30. ALBUTEROL [Concomitant]
     Indication: ASTHMA
  31. VITAMIN C [Concomitant]
     Indication: ANAEMIA
  32. ADVAIR [Concomitant]
     Indication: ASTHMA

REACTIONS (5)
  - Heart valve incompetence [Not Recovered/Not Resolved]
  - Tachycardia [Recovered/Resolved]
  - Hypertension [Recovered/Resolved]
  - Tricuspid valve incompetence [Not Recovered/Not Resolved]
  - Coronary artery stenosis [Not Recovered/Not Resolved]
